FAERS Safety Report 19148271 (Version 1)
Quarter: 2021Q2

REPORT INFORMATION
  Report Type: Spontaneous
  Country: JP (occurrence: JP)
  Receive Date: 20210416
  Receipt Date: 20210416
  Transmission Date: 20210717
  Serious: Yes (Other)
  Sender: FDA-Public Use
  Company Number: JP-PFIZER INC-2021389574

PATIENT

DRUGS (3)
  1. METHOTREXATE. [Suspect]
     Active Substance: METHOTREXATE
     Dosage: 3060 MG WAS INJECTED FROM THE CENTRAL VEIN (INTRAVENOUSLY), IT LASTED 23 HOURS AND 30 MINUTES
     Route: 042
  2. METHOTREXATE. [Suspect]
     Active Substance: METHOTREXATE
     Dosage: 340MG FOR 30 MINUTES
     Route: 042
  3. METHOTREXATE. [Suspect]
     Active Substance: METHOTREXATE
     Dosage: 15 MG WAS ADMINISTERED TO THE LUMBAR SPINE

REACTIONS (1)
  - Drug level above therapeutic [Unknown]
